FAERS Safety Report 6675756-8 (Version None)
Quarter: 2010Q2

REPORT INFORMATION
  Report Type: 
  Country: None (occurrence: None)
  Receive Date: 20100409
  Receipt Date: 20100329
  Transmission Date: 20101027
  Serious: Yes (Death)
  Sender: FDA-Public Use
  Company Number: JP-MERCK-1003USA00830

PATIENT
  Age: 75 Year
  Sex: Male

DRUGS (6)
  1. SOLU-MEDROL [Suspect]
     Indication: ASTHMA
     Route: 065
  2. MAGNESIUM (UNSPECIFIED) [Concomitant]
     Indication: ASTHMA
     Dosage: DAILY DOSAGE UNKNOWN
     Route: 065
  3. STROMECTOL [Concomitant]
     Indication: STRONGYLOIDIASIS
     Dosage: DAILY DOSAGE UNKNOWN
     Route: 048
  4. PIPERACILLIN SODIUM [Concomitant]
     Indication: PNEUMONIA
     Dosage: DAILY DOSAGE UNKNOWN
     Route: 065
  5. GENTAMICIN SULFATE [Concomitant]
     Indication: PNEUMONIA
     Dosage: DAILY DOSAGE UNKNOWN
     Route: 065
  6. EPINEPHRINE [Concomitant]
     Indication: ASTHMA
     Dosage: DAILY DOSAGE UNKNOWN
     Route: 065

REACTIONS (3)
  - DEATH [None]
  - PULMONARY ALVEOLAR HAEMORRHAGE [None]
  - STRONGYLOIDIASIS [None]
